FAERS Safety Report 16366689 (Version 1)
Quarter: 2019Q2

REPORT INFORMATION
  Report Type: Spontaneous
  Country: US (occurrence: US)
  Receive Date: 20190529
  Receipt Date: 20190529
  Transmission Date: 20190711
  Serious: No
  Sender: FDA-Public Use
  Company Number: US-KERYX BIOPHARMACEUTICALS INC.-2018US004510

PATIENT
  Age: 46 Year
  Sex: Male

DRUGS (3)
  1. AURYXIA [Suspect]
     Active Substance: TETRAFERRIC TRICITRATE DECAHYDRATE
     Dosage: 4 G, (4 TABLETS), TID WITH MEALS
     Route: 048
     Dates: start: 20180109, end: 20180920
  2. AURYXIA [Suspect]
     Active Substance: TETRAFERRIC TRICITRATE DECAHYDRATE
     Indication: HYPERPHOSPHATAEMIA
     Dosage: 2 G (2 TABLETS), TID WITH MEALS
     Route: 048
     Dates: start: 20161226, end: 20170116
  3. AURYXIA [Suspect]
     Active Substance: TETRAFERRIC TRICITRATE DECAHYDRATE
     Dosage: 3 G, (3 TABLETS), TID WITH MEALS
     Route: 048
     Dates: start: 20170117, end: 20180108

REACTIONS (2)
  - Serum ferritin increased [Unknown]
  - Transferrin saturation increased [Unknown]

NARRATIVE: CASE EVENT DATE: 20180905
